FAERS Safety Report 13652217 (Version 2)
Quarter: 2017Q3

REPORT INFORMATION
  Report Type: Spontaneous
  Country: US (occurrence: US)
  Receive Date: 20170614
  Receipt Date: 20170918
  Transmission Date: 20171127
  Serious: Yes (Hospitalization, Other)
  Sender: FDA-Public Use
  Company Number: US-PFIZER INC-2016375203

PATIENT
  Age: 66 Year
  Sex: Female
  Weight: 71.21 kg

DRUGS (77)
  1. NEUPOGEN [Concomitant]
     Active Substance: FILGRASTIM
     Dosage: 480 UG, DAILY (MCG 0 ML/HR)
     Route: 058
     Dates: start: 20160726
  2. LEVAQUIN [Concomitant]
     Active Substance: LEVOFLOXACIN
     Dosage: UNK
     Dates: start: 201608
  3. CAPHOSOL [Concomitant]
     Active Substance: CALCIUM CHLORIDE\SODIUM CHLORIDE\SODIUM PHOSPHATE, DIBASIC, ANHYDROUS\SODIUM PHOSPHATE, MONOBASIC, ANHYDROUS
     Dosage: 30 ML, DAILY(WITH BREAKFAST)
     Route: 048
     Dates: start: 20160711
  4. SODIUM CHLORIDE. [Concomitant]
     Active Substance: SODIUM CHLORIDE
     Dosage: 10 ML, AS NEEDED
     Route: 041
     Dates: start: 20160711
  5. SODIUM CHLORIDE. [Concomitant]
     Active Substance: SODIUM CHLORIDE
     Dosage: 1000 ML (50 ML/HR)
     Route: 042
     Dates: start: 20160725
  6. MAGNESIUM SULFATE. [Concomitant]
     Active Substance: MAGNESIUM SULFATE
     Indication: ELECTROLYTE IMBALANCE
     Dosage: 4 GM 50 ML/HR
     Route: 042
     Dates: start: 20160711
  7. ESOMEPRAZOLE [Concomitant]
     Active Substance: ESOMEPRAZOLE
     Dosage: 40 MG, DAILY
     Route: 048
  8. ATIVAN [Concomitant]
     Active Substance: LORAZEPAM
     Indication: VOMITING
  9. CATHFLO ACTIVASE [Concomitant]
     Active Substance: ALTEPLASE
     Dosage: 2 MG, UNK
     Route: 066
     Dates: start: 20160722
  10. TYLENOL [Concomitant]
     Active Substance: ACETAMINOPHEN
     Dosage: 650 MG, PRN
     Route: 048
     Dates: start: 20160603
  11. POTASSIUM CHLORIDE. [Concomitant]
     Active Substance: POTASSIUM CHLORIDE
     Indication: ELECTROLYTE IMBALANCE
     Dosage: 20 MEQ, AS NEEDED
     Route: 042
     Dates: start: 20160711
  12. POTASSIUM PHOSPHATE /00493501/ [Concomitant]
     Active Substance: POTASSIUM PHOSPHATE, DIBASIC
     Indication: ELECTROLYTE IMBALANCE
     Dosage: 15 MMOL, 5 ML. IVPB, AS DIRECTED, PRN
     Route: 042
     Dates: start: 20160711
  13. SODIUM PHOSPHATE [Concomitant]
     Active Substance: SODIUM PHOSPHATE
     Indication: ELECTROLYTE IMBALANCE
     Dosage: 15 MMOL, 5 ML, IVPB, AS DIRECTED, PRN
     Route: 042
     Dates: start: 20160711
  14. VFEND [Suspect]
     Active Substance: VORICONAZOLE
     Indication: FUNGAL INFECTION
     Dosage: 200 MG, 2X/DAY (TAKE ONE TABLET ORALLY/ EVERY 12 HOURS)
     Route: 048
     Dates: start: 201608, end: 201705
  15. AMLODIPINE [Concomitant]
     Active Substance: AMLODIPINE BESYLATE
     Dosage: 2.5 MG, DAILY
     Route: 048
     Dates: start: 20160722
  16. LEVAQUIN [Concomitant]
     Active Substance: LEVOFLOXACIN
     Dosage: 800 MG, DAILY
     Route: 048
  17. SODIUM CHLORIDE. [Concomitant]
     Active Substance: SODIUM CHLORIDE
     Indication: ELECTROLYTE IMBALANCE
     Dosage: 100 ML (4.17ML/ HR)
     Route: 042
     Dates: start: 20160707
  18. TACROLIMUS. [Concomitant]
     Active Substance: TACROLIMUS
     Dosage: 1 MG, 2X/DAY
  19. COLACE [Concomitant]
     Active Substance: DOCUSATE SODIUM
     Dosage: 100 MG, 2X/DAY
     Route: 048
     Dates: start: 20160722
  20. ATIVAN [Concomitant]
     Active Substance: LORAZEPAM
     Indication: NAUSEA
     Dosage: 1 MG, Q4HR(IF UNABLE TO TAKE PO)
     Route: 042
     Dates: start: 20160711
  21. HEPARIN LOCK FLUSH [Concomitant]
     Active Substance: HEPARIN SODIUM
     Dosage: 50 UNITS, AS NEEDED
     Route: 042
     Dates: start: 20160706
  22. K-LOR [Concomitant]
     Active Substance: POTASSIUM CHLORIDE
     Indication: ELECTROLYTE IMBALANCE
     Dosage: 20 MEQ, AS NEEDED
     Route: 048
     Dates: start: 20160711
  23. ENALAPRIL [Concomitant]
     Active Substance: ENALAPRIL
     Indication: HYPERTENSION
     Dosage: 1.25 MG, IV PUSH, Q6HR, PRN
     Route: 042
     Dates: start: 20160711
  24. SODIUM PHOSPHATE [Concomitant]
     Active Substance: SODIUM PHOSPHATE
     Dosage: 30 MMOL,10 ML, IVPB, AS DIRECTED, PRN
     Route: 042
     Dates: start: 20160711
  25. ACYCLOVIR. [Concomitant]
     Active Substance: ACYCLOVIR
     Indication: ANTIVIRAL PROPHYLAXIS
     Dosage: 800 MG, 2X/DAY
     Route: 048
     Dates: start: 20160711, end: 20161009
  26. ATENOLOL. [Concomitant]
     Active Substance: ATENOLOL
     Dosage: 25 MG, DAILY
     Route: 048
     Dates: start: 20160711
  27. TACROLIMUS. [Concomitant]
     Active Substance: TACROLIMUS
     Dosage: 1 MG, DAILY
     Route: 042
  28. TACROLIMUS. [Concomitant]
     Active Substance: TACROLIMUS
     Dosage: UNK
     Dates: start: 201608, end: 201703
  29. MAGNESIUM SULFATE. [Concomitant]
     Active Substance: MAGNESIUM SULFATE
     Dosage: 2 GM, IVPB, AS DIRECTED, PRN
     Route: 042
     Dates: start: 20160711
  30. ZOFRAN [Concomitant]
     Active Substance: ONDANSETRON HYDROCHLORIDE
     Indication: NAUSEA
     Dosage: 8 MG IVPB, Q8HR1 PRN
     Route: 042
     Dates: start: 20160711
  31. DEXTROSE. [Concomitant]
     Active Substance: DEXTROSE
     Dosage: 5 ML, UNK
     Route: 042
     Dates: start: 20160711
  32. ACYCLOVIR. [Concomitant]
     Active Substance: ACYCLOVIR
     Dosage: 400 MG, 2X/DAY
     Route: 048
  33. ATENOLOL. [Concomitant]
     Active Substance: ATENOLOL
     Dosage: UNK
     Dates: start: 201608
  34. LEVAQUIN [Concomitant]
     Active Substance: LEVOFLOXACIN
     Indication: ANTIBIOTIC PROPHYLAXIS
     Dosage: 600 MG, DAILY
     Route: 048
  35. TUMS [Concomitant]
     Active Substance: CALCIUM CARBONATE
     Indication: DYSPEPSIA
     Dosage: 1000 MG, 3X/DAY
     Route: 048
     Dates: start: 20160713
  36. TUMS [Concomitant]
     Active Substance: CALCIUM CARBONATE
     Dosage: 300 MG, WITH MEAL
     Route: 048
  37. FLUCONAZOLE. [Concomitant]
     Active Substance: FLUCONAZOLE
     Dosage: 400 MG, DAILY
     Route: 048
  38. ATIVAN [Concomitant]
     Active Substance: LORAZEPAM
     Indication: VOMITING
  39. ACETAMINOPHEN. [Concomitant]
     Active Substance: ACETAMINOPHEN
     Dosage: 850 MG, UNK
     Route: 048
     Dates: start: 20160725
  40. PROCHLORPERAZINE. [Concomitant]
     Active Substance: PROCHLORPERAZINE
     Indication: NAUSEA
     Dosage: 10 MG, TAB, PO, Q8HR, PRN
     Route: 048
     Dates: start: 20160711
  41. ZYRTEC [Concomitant]
     Active Substance: CETIRIZINE HYDROCHLORIDE
     Dosage: UNK, AS NEEDED
  42. POSACONAZOLE [Concomitant]
     Active Substance: POSACONAZOLE
     Indication: ASPERGILLUS INFECTION
     Dosage: 300 MG, DAILY (WITH BREAKFAST) 100 MG ORAL DELAYED RELEASE TABLET 3 TAB
     Route: 048
     Dates: start: 20160711, end: 20160830
  43. ACTIGALL [Concomitant]
     Active Substance: URSODIOL
     Dosage: 300 MG, (WITH MEAL)
     Route: 048
     Dates: start: 20160711
  44. TRAMADOL. [Concomitant]
     Active Substance: TRAMADOL
     Dosage: 50 MG, 4X/DAY
     Route: 048
     Dates: start: 20160711
  45. AMBIEN [Concomitant]
     Active Substance: ZOLPIDEM TARTRATE
     Indication: INSOMNIA
     Dosage: 5 MG, AT BEDTIME
     Route: 048
     Dates: start: 20160711
  46. APRESOLINE HYDROCHLORIDE [Concomitant]
     Active Substance: HYDRALAZINE HYDROCHLORIDE
     Indication: HYPERTENSION
     Dosage: 10 MG, Q6HR
     Route: 042
     Dates: start: 20160711
  47. ATIVAN [Concomitant]
     Active Substance: LORAZEPAM
     Indication: NAUSEA
     Dosage: 1 MG, Q4HR
     Route: 048
     Dates: start: 20160711
  48. SENOKOT-S [Concomitant]
     Active Substance: DOCUSATE SODIUM\SENNOSIDES
     Indication: CONSTIPATION
     Dosage: 2 TAB, BID, PRN
     Route: 048
     Dates: start: 20160711
  49. ZOFRAN [Concomitant]
     Active Substance: ONDANSETRON HYDROCHLORIDE
     Indication: VOMITING
  50. ZOFRAN [Concomitant]
     Active Substance: ONDANSETRON HYDROCHLORIDE
     Indication: VOMITING
  51. CALCIUM CHLORIDE /07362502/ [Concomitant]
     Indication: ELECTROLYTE IMBALANCE
     Dosage: 1GM
     Route: 042
     Dates: start: 20160711
  52. CALCIUM CHLORIDE /07362502/ [Concomitant]
     Dosage: 500 MG, UNK
     Route: 042
     Dates: start: 20160711
  53. ACYCLOVIR. [Concomitant]
     Active Substance: ACYCLOVIR
     Dosage: UNK
     Dates: start: 201608
  54. ATENOLOL. [Concomitant]
     Active Substance: ATENOLOL
     Dosage: 12.5 MG, DAILY
     Route: 048
  55. ZYRTEC [Concomitant]
     Active Substance: CETIRIZINE HYDROCHLORIDE
     Dosage: 10 MG, DAILY
     Route: 048
     Dates: start: 20160726
  56. TACROLIMUS. [Concomitant]
     Active Substance: TACROLIMUS
     Dosage: 0.5 MG, 2X/DAY
     Route: 048
  57. TUMS [Concomitant]
     Active Substance: CALCIUM CARBONATE
     Dosage: 500 MG, 4X/DAY (PRN)
  58. TRAMADOL. [Concomitant]
     Active Substance: TRAMADOL
     Indication: PAIN
     Dosage: 60 MG, (Q6H)
     Route: 048
  59. COLACE [Concomitant]
     Active Substance: DOCUSATE SODIUM
     Indication: CONSTIPATION
     Dosage: 100 MG, DAILY
     Route: 048
  60. BENADRYL [Concomitant]
     Active Substance: DIPHENHYDRAMINE HYDROCHLORIDE
     Dosage: 25 MG, UNK
     Route: 048
     Dates: start: 20160726
  61. BENADRYL [Concomitant]
     Active Substance: DIPHENHYDRAMINE HYDROCHLORIDE
     Dosage: 25 MG, UNK
     Route: 042
     Dates: start: 20160719
  62. OXYCODONE [Concomitant]
     Active Substance: OXYCODONE
     Indication: PAIN
     Dosage: 5 MG, TAB, PO, Q4HR, PRN
     Route: 048
     Dates: start: 20160711
  63. PROTONIX /00661201/ [Concomitant]
     Active Substance: OMEPRAZOLE
     Dosage: 40 MG, DAILY
     Route: 048
     Dates: start: 20160711
  64. PROTONIX /00661201/ [Concomitant]
     Active Substance: OMEPRAZOLE
     Dosage: UNK
     Dates: start: 201608
  65. SODIUM CHLORIDE. [Concomitant]
     Active Substance: SODIUM CHLORIDE
     Dosage: 20 ML, AS NEEDED
     Route: 041
     Dates: start: 20160711
  66. TACROLIMUS. [Concomitant]
     Active Substance: TACROLIMUS
     Dosage: 1 MG, DAILY
     Route: 042
     Dates: start: 20160711
  67. CALCIUM CHLORIDE /07362502/ [Concomitant]
     Dosage: 2GM
     Route: 042
     Dates: start: 20160711
  68. CALCIUM CHLORIDE /07362502/ [Concomitant]
     Dosage: 1GM
     Route: 042
     Dates: start: 20160711
  69. PROCHLORPERAZINE. [Concomitant]
     Active Substance: PROCHLORPERAZINE
     Indication: VOMITING
  70. VFEND [Suspect]
     Active Substance: VORICONAZOLE
     Indication: NEOPLASM MALIGNANT
  71. LEVAQUIN [Concomitant]
     Active Substance: LEVOFLOXACIN
     Indication: PROPHYLAXIS
     Dosage: 500 MG, DAILY
     Route: 048
     Dates: start: 20160713
  72. TACROLIMUS. [Concomitant]
     Active Substance: TACROLIMUS
     Dosage: UNK
     Dates: start: 201608, end: 201703
  73. EMLA [Concomitant]
     Active Substance: LIDOCAINE\PRILOCAINE
     Dosage: UNK
     Dates: start: 20160721
  74. ZOFRAN [Concomitant]
     Active Substance: ONDANSETRON HYDROCHLORIDE
     Indication: NAUSEA
     Dosage: 8 MG, PIS TABLET, PO, Q8HR, PRN
     Route: 048
     Dates: start: 20160711
  75. DEXTROSE. [Concomitant]
     Active Substance: DEXTROSE
     Indication: ELECTROLYTE IMBALANCE
     Dosage: 10 ML, UNK
     Route: 042
     Dates: start: 20160711
  76. LIDOCAINE. [Concomitant]
     Active Substance: LIDOCAINE
     Dosage: 0.2 ML 1 SUBCUTANEOUS, AS DIRECTED, PRN
     Route: 058
     Dates: start: 20160721
  77. POTASSIUM PHOSPHATE /00493501/ [Concomitant]
     Active Substance: POTASSIUM PHOSPHATE, DIBASIC
     Dosage: 30 MMOL, 10 ML. IVPB, AS DIRECTED, PRN
     Route: 042
     Dates: start: 20160711

REACTIONS (1)
  - Leukaemia recurrent [Recovered/Resolved]

NARRATIVE: CASE EVENT DATE: 201705
